FAERS Safety Report 6741320-5 (Version None)
Quarter: 2010Q2

REPORT INFORMATION
  Report Type: 
  Country: None (occurrence: None)
  Receive Date: 20100526
  Receipt Date: 20100519
  Transmission Date: 20101027
  Serious: Yes (Hospitalization)
  Sender: FDA-Public Use
  Company Number: FR-PFIZER INC-2010063240

PATIENT
  Age: 44 Year
  Sex: Female

DRUGS (2)
  1. MEDROL [Suspect]
     Indication: PREMEDICATION
     Dosage: 50 MG, 2X/DAY
     Route: 048
     Dates: start: 20100401, end: 20100402
  2. HERCEPTIN [Suspect]
     Indication: BREAST CANCER
     Dosage: 600 MG, 1X/DAY
     Route: 041
     Dates: start: 20100402, end: 20100402

REACTIONS (3)
  - ANGINA PECTORIS [None]
  - FLUSHING [None]
  - HYPERTENSION [None]
